FAERS Safety Report 15937311 (Version 1)
Quarter: 2019Q1

REPORT INFORMATION
  Report Type: Spontaneous
  Country: US (occurrence: US)
  Receive Date: 20190208
  Receipt Date: 20190208
  Transmission Date: 20190417
  Serious: No
  Sender: FDA-Public Use
  Company Number: US-MYLANLABS-2019M1007175

PATIENT
  Sex: Female

DRUGS (1)
  1. ESTRADIOL TRANSDERMAL SYSTEM [Suspect]
     Active Substance: ESTRADIOL
     Indication: MUSCULOSKELETAL DISORDER
     Dosage: UNK

REACTIONS (2)
  - Product use in unapproved indication [Not Recovered/Not Resolved]
  - Product adhesion issue [Unknown]
